FAERS Safety Report 22630419 (Version 1)
Quarter: 2023Q2

REPORT INFORMATION
  Report Type: Spontaneous
  Country: US (occurrence: None)
  Receive Date: 20230620
  Receipt Date: 20230620
  Transmission Date: 20230722
  Serious: Yes (Other)
  Sender: FDA-Public Use
  Company Number: None

PATIENT
  Age: 83 Year
  Sex: Female

DRUGS (6)
  1. ADEMPAS [Suspect]
     Active Substance: RIOCIGUAT
     Indication: Pulmonary hypertension
     Dosage: FREQUENCY : TWICE A DAY;?
     Route: 048
     Dates: start: 20230322
  2. ADEMPAS [Concomitant]
  3. LISINOPRIL [Concomitant]
     Active Substance: LISINOPRIL
  4. ATORVASTATIN [Concomitant]
  5. ELIQUIS [Concomitant]
  6. OXYGEN INTRANASAL [Concomitant]

REACTIONS (1)
  - Viral upper respiratory tract infection [None]

NARRATIVE: CASE EVENT DATE: 20230526
